FAERS Safety Report 12721706 (Version 1)
Quarter: 2016Q3

REPORT INFORMATION
  Report Type: Spontaneous
  Country: US (occurrence: US)
  Receive Date: 20160902
  Receipt Date: 20160902
  Transmission Date: 20161109
  Serious: No
  Sender: FDA-Public Use
  Company Number: None

PATIENT
  Age: 17 Year
  Sex: Female
  Weight: 72 kg

DRUGS (1)
  1. LODINE [Suspect]
     Active Substance: ETODOLAC
     Route: 048
     Dates: start: 20160830, end: 20160831

REACTIONS (3)
  - Tremor [None]
  - Chest pain [None]
  - Dyspnoea [None]

NARRATIVE: CASE EVENT DATE: 20160901
